FAERS Safety Report 7998403-1 (Version None)
Quarter: 2011Q4

REPORT INFORMATION
  Report Type: 
  Country: None (occurrence: None)
  Receive Date: 20111207
  Receipt Date: 20111122
  Transmission Date: 20120403
  Serious: Yes (Hospitalization)
  Sender: FDA-Public Use
  Company Number: 2011PROUSA00712

PATIENT
  Age: 69 Year
  Sex: Male
  Weight: 94.8018 kg

DRUGS (10)
  1. PRILOSEC /00661201/ (OMEPRAZOLE) CAPSULE [Concomitant]
  2. SENNOSIDES A+B (SENNOSIDE A+B) TABLET [Concomitant]
  3. OXYCODONE (OXYCODONE) TABLET [Concomitant]
  4. ELIGARD [Concomitant]
  5. PROVENGE [Suspect]
     Dates: start: 20111028, end: 20111028
  6. ASPIRIN [Concomitant]
  7. METOPROLOL TARTRATE [Concomitant]
  8. PLAVIX (CLOPIDOGREL BISULFATE) TABLET [Concomitant]
  9. PROVENGE [Suspect]
     Indication: PROSTATE CANCER METASTATIC
     Dosage: 250 ML, SINGLE, INTRAVENOUS
     Route: 042
     Dates: start: 20111014, end: 20111014
  10. CRESTOR [Concomitant]

REACTIONS (7)
  - CEREBROVASCULAR ACCIDENT [None]
  - SOMNOLENCE [None]
  - BLOOD PRESSURE INCREASED [None]
  - SINUS CONGESTION [None]
  - INFUSION RELATED REACTION [None]
  - FATIGUE [None]
  - ASTHENIA [None]
